FAERS Safety Report 10494888 (Version 2)
Quarter: 2014Q4

REPORT INFORMATION
  Report Type: Spontaneous
  Country: FR (occurrence: FR)
  Receive Date: 20141003
  Receipt Date: 20141003
  Transmission Date: 20150528
  Serious: Yes (Hospitalization)
  Sender: FDA-Public Use
  Company Number: FR-009507513-0203FRA00011

PATIENT
  Age: 42 Year
  Sex: Male

DRUGS (6)
  1. ZADITEN [Suspect]
     Active Substance: KETOTIFEN FUMARATE
     Dosage: UNK MG, UNK
     Route: 048
     Dates: end: 20020110
  2. SINGULAIR [Suspect]
     Active Substance: MONTELUKAST SODIUM
     Indication: ASTHMA
     Dosage: 10 MG, QD
     Route: 048
     Dates: start: 20011015, end: 20020123
  3. CELESTENE [Suspect]
     Active Substance: BETAMETHASONE
     Indication: PRODUCT USED FOR UNKNOWN INDICATION
     Dosage: UNK
     Route: 048
     Dates: end: 20020110
  4. FLIXONASE [Suspect]
     Active Substance: FLUTICASONE PROPIONATE
     Dates: end: 20020110
  5. FLIXOTIDE [Suspect]
     Active Substance: FLUTICASONE PROPIONATE
     Dosage: UNK
     Dates: start: 20011015, end: 20020131
  6. FORADIL [Suspect]
     Active Substance: FORMOTEROL FUMARATE
     Dosage: UNK
     Dates: start: 20011015, end: 20020131

REACTIONS (3)
  - Rash [Recovered/Resolved]
  - Eosinophilia [Recovered/Resolved]
  - Abdominal pain [Recovered/Resolved]
